FAERS Safety Report 13704715 (Version 1)
Quarter: 2017Q2

REPORT INFORMATION
  Report Type: Spontaneous
  Country: US (occurrence: US)
  Receive Date: 20170629
  Receipt Date: 20170629
  Transmission Date: 20170830
  Serious: Yes (Hospitalization, Other)
  Sender: FDA-Public Use
  Company Number: None

PATIENT
  Age: 28 Year
  Sex: Female
  Weight: 49.2 kg

DRUGS (2)
  1. CYANOCOBALAMIN 1000 MCG/ML INJECTION [Suspect]
     Active Substance: CYANOCOBALAMIN
     Indication: MALABSORPTION
     Dosage: 1 MG (1000 MCG) ONCE IM
     Route: 030
     Dates: start: 20170503
  2. CYANOCOBALAMIN 1000 MCG/ML INJECTION [Suspect]
     Active Substance: CYANOCOBALAMIN
     Indication: VITAMIN B12 DEFICIENCY
     Dosage: 1 MG (1000 MCG) ONCE IM
     Route: 030
     Dates: start: 20170503

REACTIONS (3)
  - Rash maculo-papular [None]
  - Lip oedema [None]
  - Face oedema [None]

NARRATIVE: CASE EVENT DATE: 20170505
